FAERS Safety Report 13806775 (Version 4)
Quarter: 2018Q3

REPORT INFORMATION
  Report Type: Report from Study
  Country: US (occurrence: US)
  Receive Date: 20170728
  Receipt Date: 20180802
  Transmission Date: 20181010
  Serious: Yes (Other)
  Sender: FDA-Public Use
  Company Number: US-SA-2017SA094838

PATIENT
  Age: 63 Year
  Sex: Female

DRUGS (3)
  1. DIPHENHYDRAMINE HYDROCHLORIDE. [Suspect]
     Active Substance: DIPHENHYDRAMINE HYDROCHLORIDE
     Dosage: UNK UNK, UNK
     Route: 065
     Dates: start: 201805
  2. ALEMTUZUMAB [Suspect]
     Active Substance: ALEMTUZUMAB
     Indication: MULTIPLE SCLEROSIS
     Dosage: 12 MG,QD
     Route: 041
     Dates: start: 20170501, end: 20170505
  3. SYNTHROID [Concomitant]
     Active Substance: LEVOTHYROXINE SODIUM
     Indication: THYROID DISORDER
     Dosage: UNK UNK, UNK

REACTIONS (18)
  - Productive cough [Recovering/Resolving]
  - Urinary incontinence [Not Recovered/Not Resolved]
  - Dyspnoea [Recovering/Resolving]
  - Affective disorder [Unknown]
  - Platelet count increased [Not Recovered/Not Resolved]
  - Fluid retention [Unknown]
  - Urticaria [Recovered/Resolved]
  - Chest discomfort [Recovered/Resolved]
  - Fatigue [Unknown]
  - Cystitis [Recovered/Resolved]
  - Dizziness [Not Recovered/Not Resolved]
  - Abdominal distension [Unknown]
  - Urinary tract infection [Recovered/Resolved]
  - Condition aggravated [Not Recovered/Not Resolved]
  - Burning sensation [Recovered/Resolved]
  - Rash erythematous [Not Recovered/Not Resolved]
  - Somnolence [Recovered/Resolved]
  - Urinary retention [Not Recovered/Not Resolved]

NARRATIVE: CASE EVENT DATE: 2017
